FAERS Safety Report 12571511 (Version 2)
Quarter: 2016Q3

REPORT INFORMATION
  Report Type: Spontaneous
  Country: JP (occurrence: JP)
  Receive Date: 20160719
  Receipt Date: 20160719
  Transmission Date: 20161109
  Serious: Yes (Hospitalization, Other)
  Sender: FDA-Public Use
  Company Number: JP-BAYER-2016-134781

PATIENT
  Age: 43 Year
  Sex: Male

DRUGS (1)
  1. BAYASPIRIN [Suspect]
     Active Substance: ASPIRIN
     Dosage: UNK
     Route: 048

REACTIONS (4)
  - Cerebral microhaemorrhage [Recovering/Resolving]
  - Endocarditis [Recovering/Resolving]
  - Cerebral infarction [Recovering/Resolving]
  - Embolism [Recovering/Resolving]
